FAERS Safety Report 5405243-6 (Version None)
Quarter: 2007Q3

REPORT INFORMATION
  Report Type: 
  Country: None (occurrence: None)
  Receive Date: 20070803
  Receipt Date: 20070725
  Transmission Date: 20080115
  Serious: Yes (Other)
  Sender: FDA-Public Use
  Company Number: DK-ROCHE-509033

PATIENT
  Age: 39 Year
  Sex: Female

DRUGS (3)
  1. BONIVA [Suspect]
     Indication: ENDOCRINE GLAND OPERATION
     Dosage: DOSAGE: 3MG/3MONTH.
     Route: 042
  2. ELTROXIN [Concomitant]
     Indication: DRUG USE FOR UNKNOWN INDICATION
     Route: 048
  3. HYDROCORTISONE [Concomitant]
     Indication: DRUG USE FOR UNKNOWN INDICATION

REACTIONS (2)
  - CONSTIPATION [None]
  - GASTROINTESTINAL DISORDER [None]
